FAERS Safety Report 7247486 (Version 11)
Quarter: 2013Q3

REPORT INFORMATION
  Report Type: Spontaneous
  Country: US (occurrence: US)
  Receive Date: 20100115
  Receipt Date: 20130802
  Transmission Date: 20140515
  Serious: Yes (Hospitalization, Other)
  Sender: FDA-Public Use
  Company Number: PHEH2010US00516

PATIENT
  Sex: Female

DRUGS (34)
  1. ZOMETA [Suspect]
     Indication: BREAST CANCER
     Dosage: 4 MG, QMO
     Route: 042
     Dates: start: 200508, end: 20080508
  2. CHEMOTHERAPEUTICS [Concomitant]
     Dosage: UNK UKN, UNK
     Dates: end: 200809
  3. OXYCONTIN [Concomitant]
  4. FENTANYL [Concomitant]
     Dosage: 1 DF, EVERY 3 DAYS
     Route: 061
  5. MOTRIN [Concomitant]
     Dosage: UNK UKN, Q6H
  6. AMOXICILLIN [Concomitant]
  7. CLINDAMYCIN [Concomitant]
  8. VENTOLIN [Concomitant]
     Dosage: 2 PUFFS, PRN
  9. CLARINEX-D [Concomitant]
  10. SINGULAIR [Concomitant]
     Dosage: 1 DF, PRN
     Route: 048
  11. ADVAIR [Concomitant]
     Dosage: UNK UKN, BID
  12. ZOLOFT [Concomitant]
     Dosage: 1 DF, QD
     Route: 048
  13. PROTONIX [Concomitant]
  14. DULCOLAX [Concomitant]
  15. BENADRYL [Concomitant]
  16. LOVENOX [Concomitant]
     Dosage: 80 MG, UNK
     Route: 048
  17. SOLU-MEDROL [Concomitant]
  18. CORDARONE [Concomitant]
     Route: 042
  19. DOPAMINE [Concomitant]
     Route: 042
  20. DELTASONE [Concomitant]
  21. AROMASIN [Concomitant]
  22. TAXOL [Concomitant]
  23. DILAUDID [Concomitant]
     Route: 042
  24. NARCAN [Concomitant]
     Dosage: 0.4 MG, UNK
     Route: 042
  25. ALLEGRA [Concomitant]
  26. ASTELIN [Concomitant]
  27. ELAVIL [Concomitant]
  28. FLOVENT [Concomitant]
  29. SEREVENT [Concomitant]
  30. ACCOLATE [Concomitant]
  31. ADRIAMYCIN [Concomitant]
  32. CYTOXAN [Concomitant]
  33. FOSAMAX [Concomitant]
  34. TAMOXIFEN [Concomitant]

REACTIONS (67)
  - Osteonecrosis of jaw [Unknown]
  - Exposed bone in jaw [Unknown]
  - Tooth infection [Unknown]
  - Pain in jaw [Unknown]
  - Primary sequestrum [Unknown]
  - Pain [Unknown]
  - Anxiety [Unknown]
  - Decreased interest [Unknown]
  - General physical health deterioration [Unknown]
  - Lymphadenopathy [Unknown]
  - Asthma [Unknown]
  - Breast cancer metastatic [Unknown]
  - Breast enlargement [Unknown]
  - Anaemia [Unknown]
  - Splenomegaly [Unknown]
  - Spinal pain [Unknown]
  - Metastases to spine [Unknown]
  - Metastases to bone [Unknown]
  - Dyspnoea [Unknown]
  - Chest pain [Unknown]
  - Thrombocytopenia [Unknown]
  - Depression [Unknown]
  - Intervertebral disc degeneration [Unknown]
  - Diverticulum [Unknown]
  - Hepatic steatosis [Unknown]
  - Atelectasis [Unknown]
  - Syringomyelia [Unknown]
  - Arthralgia [Unknown]
  - Spinal osteoarthritis [Unknown]
  - Myalgia [Unknown]
  - Periodontal disease [Unknown]
  - Epistaxis [Unknown]
  - Bone pain [Unknown]
  - Gastrooesophageal reflux disease [Unknown]
  - Skin lesion [Unknown]
  - Amnesia [Unknown]
  - Splenic lesion [Unknown]
  - Mastication disorder [Unknown]
  - Loose tooth [Unknown]
  - Inflammation [Unknown]
  - Cervical polyp [Unknown]
  - Metaplasia [Unknown]
  - Sepsis [Unknown]
  - Pneumonia [Unknown]
  - Respiratory failure [Unknown]
  - Abdominal distension [Unknown]
  - Type 2 diabetes mellitus [Unknown]
  - Confusional state [Unknown]
  - Respiratory distress [Unknown]
  - Lung infiltration [Unknown]
  - Hypoxia [Unknown]
  - Mental status changes [Unknown]
  - Tachycardia [Unknown]
  - Pathological fracture [Unknown]
  - Hyperglycaemia [Unknown]
  - Bacteraemia [Unknown]
  - Bone deformity [Unknown]
  - Hypokalaemia [Unknown]
  - Fall [Unknown]
  - Hypotension [Unknown]
  - Cervical spinal stenosis [Unknown]
  - Neck pain [Unknown]
  - Upper respiratory tract infection [Unknown]
  - Oedema peripheral [Unknown]
  - Hypomagnesaemia [Unknown]
  - Pulmonary congestion [Unknown]
  - Dizziness [Unknown]
